FAERS Safety Report 10579495 (Version 3)
Quarter: 2015Q1

REPORT INFORMATION
  Report Type: Spontaneous
  Country: US (occurrence: US)
  Receive Date: 20141112
  Receipt Date: 20150113
  Transmission Date: 20150720
  Serious: Yes (Life-Threatening, Hospitalization)
  Sender: FDA-Public Use
  Company Number: US-BAYER-2014-166291

PATIENT
  Age: 19 Year
  Sex: Female
  Weight: 61 kg

DRUGS (4)
  1. DIAZEPAM. [Concomitant]
     Active Substance: DIAZEPAM
  2. MIRENA [Suspect]
     Active Substance: LEVONORGESTREL
     Indication: CONTRACEPTION
     Dosage: 20 MCG/24HR, CONT
     Route: 015
     Dates: start: 20111019, end: 20130312
  3. REGLAN [Concomitant]
     Active Substance: METOCLOPRAMIDE HYDROCHLORIDE
  4. CYTOTEC [Concomitant]
     Active Substance: MISOPROSTOL

REACTIONS (7)
  - Device issue [None]
  - Uterine perforation [None]
  - Injury [None]
  - Pain [None]
  - General physical health deterioration [None]
  - Infection [None]
  - Abdominal pain [None]

NARRATIVE: CASE EVENT DATE: 201110
